FAERS Safety Report 11650540 (Version 13)
Quarter: 2018Q1

REPORT INFORMATION
  Report Type: Report from Study
  Country: BR (occurrence: BR)
  Receive Date: 20151021
  Receipt Date: 20180320
  Transmission Date: 20180508
  Serious: Yes (Other)
  Sender: FDA-Public Use
  Company Number: PHHY2015BR123723

PATIENT
  Sex: Male
  Weight: 82 kg

DRUGS (15)
  1. SOMAVERT [Concomitant]
     Active Substance: PEGVISOMANT
     Indication: ACROMEGALY
     Dosage: 1 DF, QD
     Route: 058
     Dates: start: 2013
  2. SANDOSTATIN LAR DEPOT [Suspect]
     Active Substance: OCTREOTIDE ACETATE
     Dosage: 20 MG, QMO
     Route: 030
     Dates: start: 2011
  3. SANDOSTATIN LAR DEPOT [Suspect]
     Active Substance: OCTREOTIDE ACETATE
     Dosage: 30 MG, QMO
     Route: 030
     Dates: start: 2013
  4. AMITRIPTYLINE HYDROCHLORIDE. [Concomitant]
     Active Substance: AMITRIPTYLINE HYDROCHLORIDE
     Indication: TRIGEMINAL NEURALGIA
     Dosage: 1 DF, QD
     Route: 048
     Dates: start: 2009
  5. SANDOSTATIN LAR DEPOT [Suspect]
     Active Substance: OCTREOTIDE ACETATE
     Dosage: 30 MG, UNK
     Route: 030
     Dates: start: 20180105
  6. CARBAMAZEPINE. [Concomitant]
     Active Substance: CARBAMAZEPINE
     Indication: TRIGEMINAL NEURALGIA
     Dosage: 3 DF, QD
     Route: 048
     Dates: start: 2009
  7. GLIFAGE [Concomitant]
     Active Substance: METFORMIN HYDROCHLORIDE
     Dosage: 4 DF, QD
     Route: 048
     Dates: start: 2013
  8. SIMVASTATIN. [Concomitant]
     Active Substance: SIMVASTATIN
     Indication: BLOOD CHOLESTEROL INCREASED
     Dosage: 1 DF, QD
     Route: 048
     Dates: start: 2009
  9. SANDOSTATIN LAR DEPOT [Suspect]
     Active Substance: OCTREOTIDE ACETATE
     Dosage: 20 MG, QMO
     Route: 030
  10. SANDOSTATIN LAR DEPOT [Suspect]
     Active Substance: OCTREOTIDE ACETATE
     Dosage: 10 MG, UNK
     Route: 065
     Dates: start: 2009
  11. BENGAY ARTHRITIS PAIN RELIEVING [Concomitant]
     Active Substance: MENTHOL\METHYL SALICYLATE
     Indication: HEADACHE
     Route: 065
  12. SANDOSTATIN LAR DEPOT [Suspect]
     Active Substance: OCTREOTIDE ACETATE
     Indication: ACROMEGALY
     Dosage: 30 MG, QMO
     Route: 030
     Dates: start: 200908
  13. SANDOSTATIN LAR DEPOT [Suspect]
     Active Substance: OCTREOTIDE ACETATE
     Dosage: 20 MG, QMO (EVERY 28 DAYS)
     Route: 030
  14. OMEPRAZOLE. [Concomitant]
     Active Substance: OMEPRAZOLE
     Indication: PRODUCT USED FOR UNKNOWN INDICATION
     Dosage: 1 DF, QD (1 TABLET A DAY)
     Route: 048
  15. GLIFAGE [Concomitant]
     Active Substance: METFORMIN HYDROCHLORIDE
     Indication: DIABETES MELLITUS
     Dosage: 2 DF, QD (500 MG, 2 TABLETS  A DAY)
     Route: 048
     Dates: start: 2011

REACTIONS (26)
  - Pain in extremity [Not Recovered/Not Resolved]
  - Pain in jaw [Recovering/Resolving]
  - Immunodeficiency [Recovering/Resolving]
  - Pain [Unknown]
  - Hypoaesthesia [Not Recovered/Not Resolved]
  - Depression [Recovered/Resolved]
  - Incorrect dose administered [Not Recovered/Not Resolved]
  - Diabetes mellitus [Recovering/Resolving]
  - Arthralgia [Unknown]
  - Limb discomfort [Not Recovered/Not Resolved]
  - Muscular weakness [Recovering/Resolving]
  - Bone pain [Unknown]
  - Swelling face [Not Recovered/Not Resolved]
  - Asthenia [Not Recovered/Not Resolved]
  - Tumour pain [Unknown]
  - Eye pain [Recovering/Resolving]
  - Sleep disorder due to a general medical condition [Recovering/Resolving]
  - Neoplasm progression [Unknown]
  - Trigeminal neuralgia [Unknown]
  - Dizziness [Unknown]
  - Therapy non-responder [Unknown]
  - Ear pain [Recovering/Resolving]
  - Rhinalgia [Recovering/Resolving]
  - Peripheral swelling [Not Recovered/Not Resolved]
  - Influenza [Recovering/Resolving]
  - Headache [Not Recovered/Not Resolved]
